FAERS Safety Report 14363296 (Version 1)
Quarter: 2018Q1

REPORT INFORMATION
  Report Type: Spontaneous
  Country: US (occurrence: US)
  Receive Date: 20180105
  Receipt Date: 20180105
  Transmission Date: 20180509
  Serious: Yes (Hospitalization)
  Sender: FDA-Public Use
  Company Number: None

PATIENT
  Age: 57 Year
  Sex: Female

DRUGS (11)
  1. ATORVASTATIN [Concomitant]
     Active Substance: ATORVASTATIN
  2. VICTOZA [Suspect]
     Active Substance: LIRAGLUTIDE
     Indication: TYPE 2 DIABETES MELLITUS
     Dates: start: 20171011
  3. AMOXICILLIN. [Concomitant]
     Active Substance: AMOXICILLIN
  4. ASPRIN [Concomitant]
     Active Substance: ASPIRIN
  5. IBUPROFEN. [Concomitant]
     Active Substance: IBUPROFEN
  6. LISINOPRIL. [Concomitant]
     Active Substance: LISINOPRIL
  7. AMITRIPTYLIN [Concomitant]
     Active Substance: AMITRIPTYLINE
  8. METHYLPRED [Concomitant]
     Active Substance: METHYLPREDNISOLONE
  9. CHLOREX GLU [Concomitant]
  10. METFORMIN [Concomitant]
     Active Substance: METFORMIN HYDROCHLORIDE
  11. CIPROFLOXACIN. [Concomitant]
     Active Substance: CIPROFLOXACIN

REACTIONS (1)
  - Gastric haemorrhage [None]

NARRATIVE: CASE EVENT DATE: 201801
